FAERS Safety Report 24023369 (Version 1)
Quarter: 2024Q2

REPORT INFORMATION
  Report Type: Spontaneous
  Country: KR (occurrence: KR)
  Receive Date: 20240627
  Receipt Date: 20240627
  Transmission Date: 20240716
  Serious: No
  Sender: FDA-Public Use
  Company Number: KR-ROCHE-3488220

PATIENT
  Age: 49 Year
  Sex: Female

DRUGS (4)
  1. ALECTINIB [Suspect]
     Active Substance: ALECTINIB
     Indication: Lung adenocarcinoma
     Route: 065
  2. CRIZOTINIB [Concomitant]
     Active Substance: CRIZOTINIB
     Indication: Lung adenocarcinoma
  3. GEMCITABINE [Concomitant]
     Active Substance: GEMCITABINE
  4. VINORELBINE [Concomitant]
     Active Substance: VINORELBINE TARTRATE

REACTIONS (2)
  - Drug ineffective [Unknown]
  - No adverse event [Unknown]
